FAERS Safety Report 4865062-6 (Version None)
Quarter: 2005Q4

REPORT INFORMATION
  Report Type: 
  Country: None (occurrence: None)
  Receive Date: 20051223
  Receipt Date: 20051110
  Transmission Date: 20060501
  Serious: Yes (Other)
  Sender: FDA-Public Use
  Company Number: GBWYE131711NOV05

PATIENT
  Sex: Male

DRUGS (3)
  1. ENBREL [Suspect]
     Indication: RHEUMATOID ARTHRITIS
     Route: 058
     Dates: start: 20051001
  2. CYCLOSPORINE [Concomitant]
  3. METHOTREXATE [Concomitant]

REACTIONS (5)
  - ARTHRALGIA [None]
  - NECK PAIN [None]
  - PAIN [None]
  - PYREXIA [None]
  - SHOULDER PAIN [None]
